FAERS Safety Report 9101803 (Version 2)
Quarter: 2013Q1

REPORT INFORMATION
  Report Type: Report from Study
  Country: PH (occurrence: PH)
  Receive Date: 20130217
  Receipt Date: 20130301
  Transmission Date: 20140127
  Serious: Yes (Hospitalization)
  Sender: FDA-Public Use
  Company Number: PH-BRISTOL-MYERS SQUIBB COMPANY-17354895

PATIENT
  Age: 75 Year
  Sex: Female

DRUGS (6)
  1. APIXABAN [Suspect]
     Indication: THROMBOSIS PROPHYLAXIS
     Dosage: CONT
     Route: 048
     Dates: start: 20110628
  2. DIGOXIN [Concomitant]
  3. AMLODIPINE [Concomitant]
     Dates: start: 20110226
  4. LOSARTAN [Concomitant]
     Dates: start: 20110226
  5. SPIRONOLACTONE [Concomitant]
     Dates: start: 20110128
  6. SULODEXIDE [Concomitant]
     Dates: start: 20120229, end: 20130202

REACTIONS (2)
  - Atrial fibrillation [Recovered/Resolved]
  - Pallor [Recovered/Resolved]
